FAERS Safety Report 4924285-8 (Version None)
Quarter: 2006Q1

REPORT INFORMATION
  Report Type: 
  Country: None (occurrence: None)
  Receive Date: 20060227
  Receipt Date: 20060110
  Transmission Date: 20060701
  Serious: Yes (Life-Threatening)
  Sender: FDA-Public Use
  Company Number: PHBS2006PH00673

PATIENT
  Age: 67 Year
  Sex: Male
  Weight: 60 kg

DRUGS (5)
  1. ZOMETA [Suspect]
     Indication: HYPERCALCAEMIA OF MALIGNANCY
     Dosage: 4 MG, QMO
     Dates: start: 20050101
  2. GOSERELIN [Concomitant]
  3. BICALUTAMIDE [Concomitant]
  4. MORPHINE SULFATE [Concomitant]
  5. MULTIVITAMIN [Concomitant]

REACTIONS (6)
  - GINGIVAL EROSION [None]
  - GINGIVAL SWELLING [None]
  - GINGIVITIS [None]
  - ORAL DISCHARGE [None]
  - OSTEONECROSIS [None]
  - WOUND DRAINAGE [None]
